FAERS Safety Report 5288905-3 (Version None)
Quarter: 2007Q1

REPORT INFORMATION
  Report Type: 
  Country: None (occurrence: None)
  Receive Date: 20070119
  Receipt Date: 20051230
  Transmission Date: 20070707
  Serious: Yes (Other)
  Sender: FDA-Public Use
  Company Number: BDI-007835

PATIENT
  Age: 55 Year
  Sex: Male

DRUGS (2)
  1. PROHANCE [Suspect]
     Indication: BACK PAIN
     Dosage: 20 ML ONCE IV
     Route: 042
     Dates: start: 20051230, end: 20051230
  2. PROHANCE [Suspect]
     Indication: NUCLEAR MAGNETIC RESONANCE IMAGING
     Dosage: 20 ML ONCE IV
     Route: 042
     Dates: start: 20051230, end: 20051230

REACTIONS (1)
  - HYPERSENSITIVITY [None]
